FAERS Safety Report 9109321 (Version 2)
Quarter: 2013Q4

REPORT INFORMATION
  Report Type: Spontaneous
  Country: US (occurrence: US)
  Receive Date: 20130222
  Receipt Date: 20131025
  Transmission Date: 20140711
  Serious: Yes (Hospitalization)
  Sender: FDA-Public Use
  Company Number: US-BAYER-2013-018910

PATIENT
  Age: 36 Year
  Sex: Female
  Weight: 80.73 kg

DRUGS (4)
  1. MIRENA [Suspect]
     Indication: CONTRACEPTION
     Dosage: 20 MCG/24HR, CONT
     Route: 015
     Dates: start: 20111114, end: 20120810
  2. MACROBID [Concomitant]
     Indication: URINARY TRACT INFECTION
     Dosage: 100 MG, BID
     Route: 048
     Dates: start: 20120627
  3. PRENATAL VITAMINS [VIT C,VIT H,MIN NOS,VIT PP,RETINOL,VIT E,VIT B [Concomitant]
     Dosage: 1 TAB. DAILY
  4. GLUCOSAMINE [Concomitant]
     Dosage: 500 MG, UNK

REACTIONS (13)
  - Uterine perforation [None]
  - Injury [None]
  - Emotional distress [None]
  - Abdominal discomfort [None]
  - Menorrhagia [None]
  - Irritable bowel syndrome [None]
  - Constipation [None]
  - Diarrhoea [None]
  - Abdominal distension [None]
  - Abdominal pain lower [None]
  - Pelvic discomfort [None]
  - Anxiety [None]
  - Dysmenorrhoea [None]
